FAERS Safety Report 22611339 (Version 1)
Quarter: 2023Q2

REPORT INFORMATION
  Report Type: Spontaneous
  Country: PL (occurrence: PL)
  Receive Date: 20230616
  Receipt Date: 20230616
  Transmission Date: 20230721
  Serious: Yes (Other)
  Sender: FDA-Public Use
  Company Number: PL-MYLANLABS-2023M1061546

PATIENT
  Age: 35 Year
  Sex: Female

DRUGS (4)
  1. VERAPAMIL [Suspect]
     Active Substance: VERAPAMIL HYDROCHLORIDE
     Indication: Product used for unknown indication
     Dosage: 80 MILLIGRAM, QD
     Route: 048
  2. ENOXAPARIN [Concomitant]
     Active Substance: ENOXAPARIN
     Indication: Varicose vein
     Dosage: 60 MILLIGRAM, QD
     Route: 058
  3. ASPIRIN [Concomitant]
     Active Substance: ASPIRIN
     Indication: Pre-eclampsia
     Dosage: 150 MILLIGRAM, QD
     Route: 048
  4. METHYLDOPA [Concomitant]
     Active Substance: METHYLDOPA
     Dosage: 2 GRAM
     Route: 048

REACTIONS (7)
  - Subcapsular hepatic haematoma [Unknown]
  - Condition aggravated [Unknown]
  - Haemoglobin decreased [Recovering/Resolving]
  - Activated partial thromboplastin time prolonged [Recovering/Resolving]
  - Somnolence [Unknown]
  - Hepatic enzyme increased [Recovering/Resolving]
  - Maternal exposure during pregnancy [Recovered/Resolved]
